FAERS Safety Report 6757705-7 (Version None)
Quarter: 2010Q2

REPORT INFORMATION
  Report Type: 
  Country: None (occurrence: None)
  Receive Date: 20100607
  Receipt Date: 20100527
  Transmission Date: 20101027
  Serious: Yes (Hospitalization)
  Sender: FDA-Public Use
  Company Number: SE-JNJFOC-20100600100

PATIENT
  Age: 45 Year
  Sex: Male

DRUGS (4)
  1. REMICADE [Suspect]
     Indication: ARTHRITIS
     Dosage: 2ND INFUSION (DATE UNSPECIFIED)
     Route: 042
  2. REMICADE [Suspect]
     Dosage: START DATE REPORTED AS ^20-JAN OR 15-FEB-2010^
     Route: 042
  3. METHOTREXATE [Concomitant]
  4. IPREN [Concomitant]

REACTIONS (1)
  - TUBERCULOSIS [None]
